FAERS Safety Report 10973688 (Version 1)
Quarter: 2015Q1

REPORT INFORMATION
  Report Type: Spontaneous
  Country: US (occurrence: None)
  Receive Date: 20150331
  Receipt Date: 20150331
  Transmission Date: 20150721
  Serious: Yes (Hospitalization)
  Sender: FDA-Public Use
  Company Number: None

PATIENT
  Age: 16 Year
  Sex: Female
  Weight: 78 kg

DRUGS (8)
  1. CYCLOPHOSPHAMIDE. [Suspect]
     Active Substance: CYCLOPHOSPHAMIDE
     Dates: end: 20041227
  2. DAUNORUBICIN [Suspect]
     Active Substance: DAUNORUBICIN
     Dates: end: 20041215
  3. MERCAPTOPURINE. [Suspect]
     Active Substance: MERCAPTOPURINE
     Dates: end: 20070212
  4. METHOTREXATE [Suspect]
     Active Substance: METHOTREXATE
     Dates: end: 20070212
  5. CYTARABINE. [Suspect]
     Active Substance: CYTARABINE
     Dates: end: 20050107
  6. THIOGUANINE [Suspect]
     Active Substance: THIOGUANINE
     Dates: end: 20050107
  7. VINCRISTINE [Suspect]
     Active Substance: VINCRISTINE
     Dates: end: 20060822
  8. PEG-L-ASPARAGINASE (K-H) [Suspect]
     Active Substance: PEGASPARGASE
     Dates: end: 20041201

REACTIONS (1)
  - Glioblastoma [None]

NARRATIVE: CASE EVENT DATE: 20141231
